FAERS Safety Report 11418551 (Version 2)
Quarter: 2015Q3

REPORT INFORMATION
  Report Type: Spontaneous
  Country: JP (occurrence: JP)
  Receive Date: 20150826
  Receipt Date: 20150918
  Transmission Date: 20151125
  Serious: Yes (Life-Threatening, Hospitalization, Other)
  Sender: FDA-Public Use
  Company Number: JP-ROCHE-1625760

PATIENT
  Age: 55 Year
  Sex: Male
  Weight: 56 kg

DRUGS (6)
  1. XELODA [Suspect]
     Active Substance: CAPECITABINE
     Indication: COLON CANCER
     Route: 048
     Dates: start: 20140630, end: 20150209
  2. XELODA [Suspect]
     Active Substance: CAPECITABINE
     Dosage: RECEIVED MOST RECENT DOSE ON 02/MAR/2015
     Route: 048
     Dates: start: 20150302
  3. AVASTIN [Suspect]
     Active Substance: BEVACIZUMAB
     Indication: COLON CANCER
     Route: 041
     Dates: start: 20140908
  4. AVASTIN [Suspect]
     Active Substance: BEVACIZUMAB
     Route: 041
     Dates: start: 20150302
  5. LOXONIN [Suspect]
     Active Substance: LOXOPROFEN SODIUM
     Indication: PRODUCT USED FOR UNKNOWN INDICATION
     Route: 065
     Dates: end: 20150615
  6. ELPLAT [Suspect]
     Active Substance: OXALIPLATIN
     Indication: COLON CANCER
     Route: 041
     Dates: start: 20140630, end: 20141110

REACTIONS (6)
  - Splenomegaly [Not Recovered/Not Resolved]
  - Haemoglobin decreased [Unknown]
  - Hypoaesthesia [Unknown]
  - Hepatic function abnormal [Unknown]
  - Small intestinal haemorrhage [Recovered/Resolved]
  - Oesophageal varices haemorrhage [Recovered/Resolved]

NARRATIVE: CASE EVENT DATE: 20140911
